FAERS Safety Report 6128488-9 (Version None)
Quarter: 2009Q1

REPORT INFORMATION
  Report Type: 
  Country: None (occurrence: None)
  Receive Date: 20090323
  Receipt Date: 20090320
  Transmission Date: 20090719
  Serious: Yes (Death)
  Sender: FDA-Public Use
  Company Number: CO-ASTRAZENECA-2009UW07187

PATIENT
  Age: 69 Year
  Sex: Male

DRUGS (11)
  1. SEROQUEL [Suspect]
     Indication: BIPOLAR DISORDER
     Dosage: 75MG (3/4 TABLET OF 100MG)
     Route: 048
     Dates: start: 20090311, end: 20090317
  2. SEROQUEL [Suspect]
     Route: 048
     Dates: start: 20090306, end: 20090308
  3. SEROQUEL [Suspect]
     Route: 048
     Dates: start: 20090309, end: 20090309
  4. SEROQUEL [Suspect]
     Route: 048
     Dates: start: 20090310, end: 20090310
  5. SEROQUEL [Suspect]
     Route: 048
     Dates: start: 20090311, end: 20090311
  6. VALCOTE [Concomitant]
     Dosage: 500MG 12 HOURS
  7. MEMANTINE HCL [Concomitant]
  8. MIRTAZAPINE [Concomitant]
  9. BIPERIDEN HYDROCHLORIDE TAB [Concomitant]
     Indication: EXTRAPYRAMIDAL DISORDER
  10. OLANZAPINE [Concomitant]
  11. CLONAZEPAM [Concomitant]
     Dosage: 3 DROPS ORALLY THREE TIMES DAILY

REACTIONS (1)
  - ACUTE MYOCARDIAL INFARCTION [None]
